FAERS Safety Report 7296108-6 (Version None)
Quarter: 2011Q1

REPORT INFORMATION
  Report Type: 
  Country: None (occurrence: None)
  Receive Date: 20110211
  Receipt Date: 20110211
  Transmission Date: 20110831
  Serious: Yes (Other)
  Sender: FDA-Public Use
  Company Number: None

PATIENT
  Sex: Female
  Weight: 73.4827 kg

DRUGS (1)
  1. ATELVIA [Suspect]
     Indication: OSTEOPENIA
     Dosage: 1
     Dates: start: 20110124

REACTIONS (4)
  - ARTHRALGIA [None]
  - PAIN [None]
  - CHEST PAIN [None]
  - MOVEMENT DISORDER [None]
